FAERS Safety Report 4590006-4 (Version None)
Quarter: 2005Q1

REPORT INFORMATION
  Report Type: 
  Country: None (occurrence: None)
  Receive Date: 20050218
  Receipt Date: 20050218
  Transmission Date: 20050727
  Serious: Yes (Life-Threatening, Hospitalization)
  Sender: FDA-Public Use
  Company Number: None

PATIENT
  Sex: Female
  Weight: 74.8435 kg

DRUGS (16)
  1. SERZONE [Suspect]
     Indication: DEPRESSION
     Dosage: ORAL
     Route: 048
     Dates: start: 19960615, end: 20030317
  2. ZOLOFT [Suspect]
     Indication: BIPOLAR DISORDER
     Dosage: ORAL
     Route: 048
     Dates: start: 19960615, end: 20030317
  3. PAXIL [Suspect]
     Indication: BIPOLAR DISORDER
     Dosage: ORAL
     Route: 048
     Dates: start: 19960615, end: 20030317
  4. PAXIL [Suspect]
     Indication: BORDERLINE PERSONALITY DISORDER
     Dosage: ORAL
     Route: 048
     Dates: start: 19960615, end: 20030317
  5. WELLBUTRIN [Concomitant]
  6. HALDOL [Concomitant]
  7. NEURONTIN [Concomitant]
  8. EFFEXOR [Concomitant]
  9. REMERON [Concomitant]
  10. VALIUM [Concomitant]
  11. XANAX [Concomitant]
  12. VISTRAL [Concomitant]
  13. CELEXA [Concomitant]
  14. TRAZODONE HCL [Concomitant]
  15. DEPAKOTE [Concomitant]
  16. TRILEPTAL [Concomitant]

REACTIONS (16)
  - ABNORMAL BEHAVIOUR [None]
  - AGGRESSION [None]
  - ANGER [None]
  - ANXIETY [None]
  - ATTENTION-SEEKING BEHAVIOUR [None]
  - BIPOLAR DISORDER [None]
  - BORDERLINE PERSONALITY DISORDER [None]
  - ECONOMIC PROBLEM [None]
  - FAMILY STRESS [None]
  - GRAND MAL CONVULSION [None]
  - PAIN [None]
  - PARAPHILIA [None]
  - PSYCHOTIC DISORDER [None]
  - STRESS [None]
  - SUICIDE ATTEMPT [None]
  - TREATMENT NONCOMPLIANCE [None]
